FAERS Safety Report 16156748 (Version 1)
Quarter: 2019Q2

REPORT INFORMATION
  Report Type: Spontaneous
  Country: US (occurrence: US)
  Receive Date: 20190228
  Receipt Date: 20190228
  Transmission Date: 20190711
  Serious: Yes (Other)
  Sender: FDA-Public Use
  Company Number: None

PATIENT
  Age: 76 Year
  Sex: Female
  Weight: 72.57 kg

DRUGS (1)
  1. AZATHIOPRINE 50MG [Suspect]
     Active Substance: AZATHIOPRINE
     Indication: COLITIS MICROSCOPIC
     Route: 048

REACTIONS (4)
  - Arthralgia [None]
  - Tremor [None]
  - Muscle disorder [None]
  - Increased tendency to bruise [None]

NARRATIVE: CASE EVENT DATE: 20141216
